FAERS Safety Report 20921263 (Version 1)
Quarter: 2022Q2

REPORT INFORMATION
  Report Type: Report from Study
  Country: US (occurrence: US)
  Receive Date: 20220606
  Receipt Date: 20220606
  Transmission Date: 20220720
  Serious: No
  Sender: FDA-Public Use
  Company Number: US-KYOWAKIRIN-2022BKK008463

PATIENT

DRUGS (1)
  1. CRYSVITA [Suspect]
     Active Substance: BUROSUMAB-TWZA
     Indication: Hereditary hypophosphataemic rickets
     Dosage: 10 MG, EVERY 2 WEEKS
     Route: 065
     Dates: start: 20220527

REACTIONS (6)
  - Pyrexia [Unknown]
  - Myalgia [Unknown]
  - Pain [Unknown]
  - Muscle spasms [Unknown]
  - Nausea [Unknown]
  - Tremor [Unknown]
